FAERS Safety Report 8563714-8 (Version None)
Quarter: 2012Q3

REPORT INFORMATION
  Report Type: 
  Country: None (occurrence: None)
  Receive Date: 20120803
  Receipt Date: 20120724
  Transmission Date: 20120928
  Serious: No
  Sender: FDA-Public Use
  Company Number: US-BIOGENIDEC-2012BI027244

PATIENT
  Age: 49 Year
  Sex: Male

DRUGS (1)
  1. AVONEX [Suspect]
     Indication: MULTIPLE SCLEROSIS
     Route: 030
     Dates: start: 20120721

REACTIONS (5)
  - MUSCLE SPASMS [None]
  - HEADACHE [None]
  - CHILLS [None]
  - INFLUENZA LIKE ILLNESS [None]
  - TREMOR [None]
